FAERS Safety Report 9002554 (Version 2)
Quarter: 2013Q2

REPORT INFORMATION
  Report Type: Spontaneous
  Country: IT (occurrence: IT)
  Receive Date: 20130107
  Receipt Date: 20130419
  Transmission Date: 20140414
  Serious: Yes (Other)
  Sender: FDA-Public Use
  Company Number: IT-PFIZER INC-2013000650

PATIENT
  Age: 54 Year
  Sex: Male

DRUGS (9)
  1. CAMPTO [Suspect]
     Indication: COLON CANCER
     Dosage: 316.8 MG, CYCLIC
     Route: 042
     Dates: start: 20121206, end: 20121206
  2. FLUOROURACIL ^TEVA^ [Suspect]
     Indication: COLON CANCER
     Dosage: 704 MG, CYCLIC
     Route: 042
     Dates: start: 20121206, end: 20121206
  3. FLUOROURACIL ^TEVA^ [Suspect]
     Dosage: 1056 MG, CYCLIC
     Route: 042
     Dates: start: 20121207, end: 20121208
  4. AVASTIN [Suspect]
     Indication: COLON CANCER
     Dosage: 350 MG, CYCLIC
     Route: 042
     Dates: start: 20121206, end: 20121206
  5. ONDANSETRON [Concomitant]
     Indication: COLON CANCER
     Dosage: 8 MG, UNK
     Route: 042
     Dates: start: 20121206, end: 20121206
  6. FELODAY [Concomitant]
     Dosage: 5 MG, UNK
     Route: 048
  7. PRITOR [Concomitant]
     Indication: HYPERTENSION
     Dosage: 80 MG, UNK
     Route: 048
  8. SOLDESAM [Concomitant]
     Indication: COLON CANCER
     Dosage: 8 MG, UNK
     Route: 042
     Dates: start: 20121206, end: 20121206
  9. RANIDIL [Concomitant]
     Indication: COLON CANCER
     Dosage: 100 MG, UNK
     Route: 042
     Dates: start: 20121206, end: 20121206

REACTIONS (9)
  - Diarrhoea [Recovering/Resolving]
  - Hypotension [Recovering/Resolving]
  - Lacrimation increased [Recovering/Resolving]
  - Eye oedema [Recovering/Resolving]
  - Salivary hypersecretion [Recovering/Resolving]
  - Syncope [Not Recovered/Not Resolved]
  - Loss of consciousness [Recovering/Resolving]
  - Musculoskeletal chest pain [Recovering/Resolving]
  - Musculoskeletal pain [Recovering/Resolving]
